FAERS Safety Report 18365120 (Version 1)
Quarter: 2020Q4

REPORT INFORMATION
  Report Type: Spontaneous
  Country: US (occurrence: US)
  Receive Date: 20201009
  Receipt Date: 20201009
  Transmission Date: 20210114
  Serious: No
  Sender: FDA-Public Use
  Company Number: None

PATIENT
  Age: 40 Year
  Sex: Female

DRUGS (2)
  1. CIMZIA [Suspect]
     Active Substance: CERTOLIZUMAB PEGOL
     Indication: RHEUMATOID ARTHRITIS
     Dosage: ROUTE: AT WEEKS 0, 2, /T/ 4 AS DIRECTED
     Route: 058
     Dates: start: 202006
  2. CIMZIA [Suspect]
     Active Substance: CERTOLIZUMAB PEGOL
     Indication: POLYARTHRITIS
     Dosage: ROUTE: AT WEEKS 0, 2, /T/ 4 AS DIRECTED
     Route: 058
     Dates: start: 202006

REACTIONS (1)
  - Respiratory tract infection [None]
